FAERS Safety Report 7448560-0 (Version None)
Quarter: 2011Q2

REPORT INFORMATION
  Report Type: 
  Country: None (occurrence: None)
  Receive Date: 20110429
  Receipt Date: 20100524
  Transmission Date: 20111010
  Serious: No
  Sender: FDA-Public Use
  Company Number: US-ASTRAZENECA-2010SE23984

PATIENT
  Age: 35 Year
  Sex: Female

DRUGS (1)
  1. NEXIUM [Suspect]
     Route: 048

REACTIONS (3)
  - GLOSSODYNIA [None]
  - ABDOMINAL PAIN [None]
  - OESOPHAGEAL PAIN [None]
